FAERS Safety Report 14610026 (Version 1)
Quarter: 2018Q1

REPORT INFORMATION
  Report Type: Spontaneous
  Country: US (occurrence: US)
  Receive Date: 20180307
  Receipt Date: 20180307
  Transmission Date: 20180509
  Serious: No
  Sender: FDA-Public Use
  Company Number: None

PATIENT
  Age: 40 Year
  Sex: Female
  Weight: 61.2 kg

DRUGS (3)
  1. GRALISE [Suspect]
     Active Substance: GABAPENTIN
     Indication: BURNING SENSATION
     Dosage: ?          QUANTITY:33 TABLET(S);?
     Route: 048
     Dates: start: 20180305
  2. HYDROCODONE [Concomitant]
     Active Substance: HYDROCODONE
  3. TRAMADOL. [Concomitant]
     Active Substance: TRAMADOL
     Indication: BURNING SENSATION

REACTIONS (1)
  - Dizziness [None]

NARRATIVE: CASE EVENT DATE: 20180307
